FAERS Safety Report 25005154 (Version 2)
Quarter: 2025Q2

REPORT INFORMATION
  Report Type: Report from Study
  Country: US (occurrence: US)
  Receive Date: 20250224
  Receipt Date: 20250402
  Transmission Date: 20250717
  Serious: Yes (Hospitalization, Other)
  Sender: FERRING
  Company Number: US-FERRINGPH-2025FE00715

PATIENT

DRUGS (1)
  1. NADOFARAGENE FIRADENOVEC [Suspect]
     Active Substance: NADOFARAGENE FIRADENOVEC
     Indication: Product used for unknown indication
     Route: 065
     Dates: start: 20241106, end: 20241106

REACTIONS (2)
  - Encephalopathy [Recovered/Resolved]
  - Pyrexia [Recovered/Resolved]

NARRATIVE: CASE EVENT DATE: 20241112
